FAERS Safety Report 10032922 (Version 2)
Quarter: 2014Q1

REPORT INFORMATION
  Report Type: Report from Study
  Country: DE (occurrence: DE)
  Receive Date: 20140324
  Receipt Date: 20140324
  Transmission Date: 20141002
  Serious: Yes (Hospitalization)
  Sender: FDA-Public Use
  Company Number: DE-PFIZER INC-2014066483

PATIENT
  Age: 78 Year
  Sex: Male
  Weight: 94 kg

DRUGS (1)
  1. TORISEL [Suspect]
     Indication: MANTLE CELL LYMPHOMA
     Dosage: 50 MG, CYCLIC (7 CYCLES)
     Route: 042
     Dates: start: 20140103, end: 20140221

REACTIONS (2)
  - Atypical pneumonia [Recovered/Resolved]
  - Dyspnoea [Unknown]
